FAERS Safety Report 24317284 (Version 1)
Quarter: 2024Q3

REPORT INFORMATION
  Report Type: Spontaneous
  Country: MX (occurrence: MX)
  Receive Date: 20240913
  Receipt Date: 20240913
  Transmission Date: 20241017
  Serious: Yes (Other)
  Sender: BAYER
  Company Number: MX-BAYER-2024A130989

PATIENT
  Age: 32 Year
  Sex: Female
  Weight: 76 kg

DRUGS (1)
  1. GADOBUTROL [Suspect]
     Active Substance: GADOBUTROL
     Indication: Magnetic resonance imaging head
     Dosage: 7 ML, ONCE
     Dates: start: 20240909, end: 20240909

REACTIONS (5)
  - Urticaria [None]
  - Nausea [None]
  - Cough [None]
  - Vomiting [None]
  - Throat tightness [None]

NARRATIVE: CASE EVENT DATE: 20240909
